FAERS Safety Report 5699738-8 (Version None)
Quarter: 2008Q2

REPORT INFORMATION
  Report Type: 
  Country: None (occurrence: None)
  Receive Date: 20080410
  Receipt Date: 20080331
  Transmission Date: 20081010
  Serious: Yes (Other)
  Sender: FDA-Public Use
  Company Number: PHBS2007JP13404

PATIENT
  Weight: 55 kg

DRUGS (5)
  1. ZOMETA [Suspect]
     Indication: METASTASES TO BONE
     Dosage: 4 MG, QMO
     Route: 042
     Dates: start: 20060912, end: 20070618
  2. DECADRON [Concomitant]
     Indication: PROSTATE CANCER
     Dosage: 1 MG/DAY
     Route: 048
     Dates: start: 20060502
  3. GASTER D [Concomitant]
     Indication: GASTRITIS
     Dosage: 20 MG/DAY
     Route: 048
     Dates: start: 20060508
  4. LOXONIN [Concomitant]
     Indication: CANCER PAIN
     Dosage: 120 MG/DAY
     Route: 048
     Dates: start: 20051228
  5. ESTRACYT [Concomitant]

REACTIONS (2)
  - OSTEOMYELITIS [None]
  - TOOTHACHE [None]
